FAERS Safety Report 14192162 (Version 7)
Quarter: 2020Q4

REPORT INFORMATION
  Report Type: Other
  Country: US (occurrence: US)
  Receive Date: 20171115
  Receipt Date: 20201229
  Transmission Date: 20210113
  Serious: Yes (Other)
  Sender: FDA-Public Use
  Company Number: US-ROCHE-2021825

PATIENT
  Age: 49 Year
  Sex: Female
  Weight: 53.57 kg

DRUGS (8)
  1. IBUPROFEN. [Concomitant]
     Active Substance: IBUPROFEN
     Indication: PAIN
     Route: 048
  2. OCREVUS [Suspect]
     Active Substance: OCRELIZUMAB
     Dosage: FIRST DOSE; ONGOING NO
     Route: 065
     Dates: start: 20180208
  3. OCREVUS [Suspect]
     Active Substance: OCRELIZUMAB
     Route: 042
     Dates: start: 201705
  4. BENADRYL [Concomitant]
     Active Substance: DIPHENHYDRAMINE HYDROCHLORIDE
     Indication: PREMEDICATION
     Route: 042
     Dates: start: 20170505
  5. OCREVUS [Suspect]
     Active Substance: OCRELIZUMAB
     Dosage: 2ND DOSE; ONGOING UNKNOWN
     Route: 065
     Dates: start: 20180806
  6. VALIUM [Suspect]
     Active Substance: DIAZEPAM
     Indication: ANXIETY
     Dosage: AS NEEDED
     Route: 048
     Dates: start: 2019
  7. OCREVUS [Suspect]
     Active Substance: OCRELIZUMAB
     Indication: PRIMARY PROGRESSIVE MULTIPLE SCLEROSIS
     Route: 042
     Dates: start: 20170505
  8. KLONOPIN [Suspect]
     Active Substance: CLONAZEPAM
     Indication: ANXIETY
     Route: 048
     Dates: start: 2018

REACTIONS (25)
  - Asthenia [Recovered/Resolved]
  - Anxiety [Not Recovered/Not Resolved]
  - Dizziness [Not Recovered/Not Resolved]
  - Vomiting [Unknown]
  - Hypoaesthesia [Not Recovered/Not Resolved]
  - Fatigue [Not Recovered/Not Resolved]
  - Urinary incontinence [Not Recovered/Not Resolved]
  - Memory impairment [Recovered/Resolved]
  - Gastric disorder [Not Recovered/Not Resolved]
  - Fall [Unknown]
  - Muscular weakness [Not Recovered/Not Resolved]
  - Gait disturbance [Not Recovered/Not Resolved]
  - Therapeutic response shortened [Recovered/Resolved]
  - Fatigue [Unknown]
  - Muscle tightness [Unknown]
  - Decreased appetite [Not Recovered/Not Resolved]
  - Fall [Unknown]
  - Feeling hot [Unknown]
  - Amnesia [Recovered/Resolved]
  - Joint instability [Not Recovered/Not Resolved]
  - Respiratory disorder [Not Recovered/Not Resolved]
  - Urinary tract disorder [Not Recovered/Not Resolved]
  - Gait disturbance [Not Recovered/Not Resolved]
  - Nausea [Not Recovered/Not Resolved]
  - Dysarthria [Not Recovered/Not Resolved]

NARRATIVE: CASE EVENT DATE: 201709
